FAERS Safety Report 9564792 (Version 2)
Quarter: 2013Q4

REPORT INFORMATION
  Report Type: Report from Study
  Country: US (occurrence: US)
  Receive Date: 20130930
  Receipt Date: 20131018
  Transmission Date: 20140711
  Serious: Yes (Hospitalization, Other)
  Sender: FDA-Public Use
  Company Number: US-JNJFOC-20130913300

PATIENT
  Age: 57 Year
  Sex: Female

DRUGS (2)
  1. REMICADE [Suspect]
     Indication: CROHN^S DISEASE
     Dosage: STOP DATE: JUL OR AUG-2013
     Route: 042
     Dates: end: 2013
  2. PENTASA [Concomitant]
     Indication: PAIN
     Dosage: 1000 MG CAPSULE/500 MG/TWO CAPSULES FOUR TIMES DAILY/ORAL
     Route: 048

REACTIONS (10)
  - Crohn^s disease [Not Recovered/Not Resolved]
  - Loss of consciousness [Recovered/Resolved]
  - Visual impairment [Not Recovered/Not Resolved]
  - Abnormal loss of weight [Not Recovered/Not Resolved]
  - Blood electrolytes decreased [Unknown]
  - Bladder disorder [Unknown]
  - Urinary tract infection [Not Recovered/Not Resolved]
  - Malaise [Recovered/Resolved]
  - Swelling [Not Recovered/Not Resolved]
  - Pain [Unknown]
